FAERS Safety Report 4489926-0 (Version None)
Quarter: 2004Q4

REPORT INFORMATION
  Report Type: 
  Country: None (occurrence: None)
  Receive Date: 20041101
  Receipt Date: 20040408
  Transmission Date: 20050328
  Serious: Yes (Hospitalization)
  Sender: FDA-Public Use
  Company Number: US-GLAXOSMITHKLINE-A0506441A

PATIENT
  Age: 40 Year
  Sex: Female

DRUGS (7)
  1. LAMICTAL [Suspect]
     Indication: BIPOLAR DISORDER
     Route: 048
     Dates: start: 20040216
  2. CLOZAPINE [Concomitant]
     Route: 065
  3. VALPROIC ACID [Concomitant]
     Route: 065
  4. LITHIUM [Concomitant]
     Route: 065
  5. ZOLOFT [Concomitant]
     Route: 065
  6. DEPAKOTE [Concomitant]
  7. KLONOPIN [Concomitant]

REACTIONS (7)
  - CATAPLEXY [None]
  - CATATONIA [None]
  - CONDITION AGGRAVATED [None]
  - DYSARTHRIA [None]
  - FEELING DRUNK [None]
  - STRESS SYMPTOMS [None]
  - WAXY FLEXIBILITY [None]
